FAERS Safety Report 5729207-8 (Version None)
Quarter: 2008Q2

REPORT INFORMATION
  Report Type: 
  Country: None (occurrence: None)
  Receive Date: 20080506
  Receipt Date: 20080421
  Transmission Date: 20081010
  Serious: Yes (Hospitalization)
  Sender: FDA-Public Use
  Company Number: AU-ROCHE-395095

PATIENT
  Sex: Female

DRUGS (11)
  1. CAPECITABINE [Suspect]
     Dosage: GIVEN ON DAYS 1-14 OF A 21 DAY CYCLE
     Route: 048
     Dates: start: 20040130
  2. VINORELBINE [Suspect]
     Dosage: GIVEN ON DAYS 1 AND 8 OF A 21 DAY CYCLE
     Route: 048
     Dates: start: 20040630
  3. ZOLOFT [Concomitant]
     Route: 048
     Dates: start: 20030101
  4. PARIET [Concomitant]
     Route: 048
     Dates: start: 20030101
  5. VERAPAMIL EXTENDED-RELEASE [Concomitant]
     Route: 048
     Dates: start: 20020101
  6. TEMAZEPAM [Concomitant]
  7. SEROQUEL [Concomitant]
     Route: 048
     Dates: start: 20031221
  8. SERETIDE [Concomitant]
     Dates: start: 20030101
  9. SERETIDE [Concomitant]
     Dates: start: 20030101
  10. ZANTAC [Concomitant]
     Route: 048
     Dates: start: 20040624
  11. METHADONE HCL [Concomitant]
     Dosage: DRUG NAME REPORTED AS MATHADONE.
     Route: 048
     Dates: start: 20040614

REACTIONS (5)
  - ABDOMINAL PAIN [None]
  - ANXIETY [None]
  - CONSTIPATION [None]
  - NAUSEA [None]
  - VOMITING [None]
